FAERS Safety Report 22323254 (Version 1)
Quarter: 2023Q2

REPORT INFORMATION
  Report Type: Spontaneous
  Country: US (occurrence: US)
  Receive Date: 20230516
  Receipt Date: 20230516
  Transmission Date: 20230721
  Serious: Yes (Other)
  Sender: FDA-Public Use
  Company Number: US-ROCHE-1996048

PATIENT
  Sex: Female
  Weight: 54.479 kg

DRUGS (16)
  1. CLONAZEPAM [Suspect]
     Active Substance: CLONAZEPAM
     Indication: Sleep disorder
     Dosage: 1 IN THE MORNING 2 AT NIGHT VIA G TUBE
     Dates: start: 20170628
  2. CLONAZEPAM [Suspect]
     Active Substance: CLONAZEPAM
     Indication: Sleep disorder
     Dosage: VIA G TUBE
  3. RITUXAN [Suspect]
     Active Substance: RITUXIMAB
     Indication: Multiple sclerosis
     Dosage: EVERY 6 MONTHS, FURTHER DOSES IN AUG/2016 AND JAN/2017, DATE OF SERVICE: 15/DEC/2017, 22/JAN/2018, N
     Route: 042
     Dates: start: 201601
  4. RITUXAN [Suspect]
     Active Substance: RITUXIMAB
     Indication: Multiple sclerosis
     Dosage: INJECT 1000 MG ONCE, THEN REPEAT ONCE IN 2 WEEKS.
     Route: 042
     Dates: start: 20201125
  5. XANAX [Concomitant]
     Active Substance: ALPRAZOLAM
     Dosage: VIA G TUBE
  6. ADDERALL [Concomitant]
     Active Substance: AMPHETAMINE ASPARTATE\AMPHETAMINE SULFATE\DEXTROAMPHETAMINE SACCHARATE\DEXTROAMPHETAMINE SULFATE
     Dosage: VIA G TUBE
  7. PROZAC [Concomitant]
     Active Substance: FLUOXETINE HYDROCHLORIDE
     Dosage: VIA G TUBE
  8. MARINOL [Concomitant]
     Active Substance: DRONABINOL
     Dosage: VIA G TUBE, 2 TIMES IN 1 DAY
  9. OXYCODONE [Concomitant]
     Active Substance: OXYCODONE
     Dosage: 5MG PER 5 ML SOLUTION 7.5MG EVERY 12 HOURS
  10. BACLOFEN [Concomitant]
     Active Substance: BACLOFEN
     Indication: Muscle relaxant therapy
     Dosage: VIA G TUBE, 3 TIMES IN 1 DAY
  11. CYMBALTA [Concomitant]
     Active Substance: DULOXETINE HYDROCHLORIDE
     Dosage: VIA G TUBE
  12. GABAPENTIN [Concomitant]
     Active Substance: GABAPENTIN
     Dosage: VIA G TUBE, 3 TIMES IN 1 DAY
  13. DEXAMETHASONE [Concomitant]
     Active Substance: DEXAMETHASONE
     Route: 042
  14. MORPHINE [Concomitant]
     Active Substance: MORPHINE
     Route: 042
  15. BENADRYL [Concomitant]
     Active Substance: DIPHENHYDRAMINE HYDROCHLORIDE
     Route: 042
  16. TYLENOL [Concomitant]
     Active Substance: ACETAMINOPHEN
     Route: 048

REACTIONS (2)
  - Product use in unapproved indication [Unknown]
  - Multiple sclerosis [Unknown]
